FAERS Safety Report 25129670 (Version 1)
Quarter: 2025Q1

REPORT INFORMATION
  Report Type: Spontaneous
  Country: CN (occurrence: CN)
  Receive Date: 20250327
  Receipt Date: 20250327
  Transmission Date: 20250408
  Serious: Yes (Life-Threatening, Hospitalization, Other)
  Sender: PFIZER
  Company Number: CN-PFIZER INC-PV202500036568

PATIENT
  Age: 71 Year
  Sex: Male

DRUGS (2)
  1. AXITINIB [Suspect]
     Active Substance: AXITINIB
     Indication: Lung adenocarcinoma stage IV
     Dosage: 80 MG, DAILY
  2. AXITINIB [Suspect]
     Active Substance: AXITINIB
     Dosage: 160 MG, DAILY

REACTIONS (3)
  - Prescribed overdose [Recovering/Resolving]
  - Toxic epidermal necrolysis [Recovering/Resolving]
  - Off label use [Unknown]
